FAERS Safety Report 4300466-1 (Version None)
Quarter: 2004Q1

REPORT INFORMATION
  Report Type: 
  Country: None (occurrence: None)
  Receive Date: 20040218
  Receipt Date: 20040204
  Transmission Date: 20041129
  Serious: Yes (Hospitalization)
  Sender: FDA-Public Use
  Company Number: 2004-BP-00807BP

PATIENT
  Sex: Female

DRUGS (1)
  1. VIRAMUNE [Suspect]

REACTIONS (1)
  - ORAL SOFT TISSUE DISORDER [None]
